FAERS Safety Report 7028158-9 (Version None)
Quarter: 2010Q4

REPORT INFORMATION
  Report Type: 
  Country: None (occurrence: None)
  Receive Date: 20101005
  Receipt Date: 20100927
  Transmission Date: 20110411
  Serious: Yes (Hospitalization)
  Sender: FDA-Public Use
  Company Number: JP-JNJFOC-20100808645

PATIENT
  Sex: Female
  Weight: 62 kg

DRUGS (8)
  1. DOXIL [Suspect]
     Indication: OVARIAN CANCER
     Route: 042
  2. DOXIL [Suspect]
     Dosage: CYCLES 1-4
     Route: 042
  3. DOXIL [Suspect]
     Dosage: CYCLE 5
     Route: 042
  4. DOXIL [Suspect]
     Route: 042
  5. DOXIL [Suspect]
     Route: 042
  6. MUCOSTA [Concomitant]
     Indication: PROPHYLAXIS
     Route: 048
  7. PYDOXAL [Concomitant]
     Indication: PROPHYLAXIS
     Route: 048
  8. SODIUM GUALENATE [Concomitant]
     Indication: PROPHYLAXIS
     Route: 049

REACTIONS (1)
  - PANCREATITIS ACUTE [None]
